FAERS Safety Report 6641052-8 (Version None)
Quarter: 2010Q1

REPORT INFORMATION
  Report Type: 
  Country: None (occurrence: None)
  Receive Date: 20100318
  Receipt Date: 20091023
  Transmission Date: 20100710
  Serious: No
  Sender: FDA-Public Use
  Company Number: US-ASTRAZENECA-2009SE22333

PATIENT
  Sex: Male

DRUGS (1)
  1. LISINOPRIL [Suspect]
     Route: 048

REACTIONS (2)
  - ADVERSE DRUG REACTION [None]
  - COUGH [None]
